FAERS Safety Report 4917722-6 (Version None)
Quarter: 2006Q1

REPORT INFORMATION
  Report Type: 
  Country: None (occurrence: None)
  Receive Date: 20060215
  Receipt Date: 20060203
  Transmission Date: 20060701
  Serious: Yes (Other)
  Sender: FDA-Public Use
  Company Number: 2006017924

PATIENT
  Age: 72 Year
  Sex: Male
  Weight: 87.5442 kg

DRUGS (3)
  1. LIPITOR [Suspect]
     Indication: BLOOD CHOLESTEROL INCREASED
     Dosage: 40 MG( 40 MG, 1 IN 1 D), ORAL
     Route: 048
     Dates: end: 20051201
  2. NEXIUM [Concomitant]
  3. ASPIRIN                          (ACETILSALICYLIC ACID) [Concomitant]

REACTIONS (2)
  - MUSCULAR WEAKNESS [None]
  - RHEUMATOID ARTHRITIS [None]
